FAERS Safety Report 19730305 (Version 1)
Quarter: 2021Q3

REPORT INFORMATION
  Report Type: Spontaneous
  Country: NL (occurrence: NL)
  Receive Date: 20210820
  Receipt Date: 20210820
  Transmission Date: 20211014
  Serious: Yes (Other)
  Sender: FDA-Public Use
  Company Number: NL-TEVA-2021-NL-1943142

PATIENT
  Age: 0 Week
  Sex: Male

DRUGS (2)
  1. QUETIAPINE TABLET FO  25MG / BRAND NAME NOT SPECIFIED [Suspect]
     Active Substance: QUETIAPINE
     Indication: ANXIETY
     Dosage: 25 MILLIGRAM DAILY; THERAPY START DATE AND END DATE : ASKU
  2. CLOMIPRAMINE TABLET OMHULD 25MG / BRAND NAME NOT SPECIFIED [Concomitant]
     Dosage: 25 MG (MILLIGRAM) , THERAPY START DATE AND END DATE : ASKU

REACTIONS (3)
  - Maternal exposure during pregnancy [Unknown]
  - Neutropenia neonatal [Recovered/Resolved]
  - Leukopenia neonatal [Recovered/Resolved]

NARRATIVE: CASE EVENT DATE: 20210717
